FAERS Safety Report 21298011 (Version 3)
Quarter: 2022Q4

REPORT INFORMATION
  Report Type: Report from Study
  Country: CN (occurrence: CN)
  Receive Date: 20220906
  Receipt Date: 20221214
  Transmission Date: 20230113
  Serious: Yes (Death)
  Sender: FDA-Public Use
  Company Number: CN-PFIZER INC-PV202200052417

PATIENT
  Age: 49 Year
  Sex: Female
  Weight: 63 kg

DRUGS (2)
  1. PACLITAXEL [Suspect]
     Active Substance: PACLITAXEL
     Indication: Ovarian cancer
     Dosage: 124.2 MG, WEEKLY (QW)
     Route: 041
     Dates: start: 20220512, end: 20220519
  2. AFURESERTIB [Suspect]
     Active Substance: AFURESERTIB
     Indication: Ovarian cancer
     Dosage: 125 MG, 1X/DAY, TABLET
     Route: 048
     Dates: start: 20220512, end: 20220519

REACTIONS (2)
  - Anaemia [Fatal]
  - Spinal fracture [Fatal]

NARRATIVE: CASE EVENT DATE: 20220525
